FAERS Safety Report 15972568 (Version 1)
Quarter: 2019Q1

REPORT INFORMATION
  Report Type: Spontaneous
  Country: GB (occurrence: GB)
  Receive Date: 20190216
  Receipt Date: 20190216
  Transmission Date: 20190418
  Serious: Yes (Hospitalization)
  Sender: FDA-Public Use
  Company Number: GB-ACCORD-106432

PATIENT
  Age: 90 Year
  Sex: Female
  Weight: 36 kg

DRUGS (12)
  1. RANITIDINE. [Concomitant]
     Active Substance: RANITIDINE
  2. VITAMIN B COMPLEX STRONG [Concomitant]
  3. FUROSEMIDE. [Suspect]
     Active Substance: FUROSEMIDE
     Indication: PRODUCT USED FOR UNKNOWN INDICATION
     Dosage: IN THE MORNING
     Route: 048
     Dates: end: 20180615
  4. DOCUSATE/DOCUSATE CALCIUM/DOCUSATE POTASSIUM/DOCUSATE SODIUM [Suspect]
     Active Substance: DOCUSATE
     Indication: CONSTIPATION
     Route: 048
     Dates: end: 20180615
  5. ASPIRIN. [Concomitant]
     Active Substance: ASPIRIN
  6. THIAMINE. [Concomitant]
     Active Substance: THIAMINE
  7. AMILORIDE [Suspect]
     Active Substance: AMILORIDE
     Indication: PRODUCT USED FOR UNKNOWN INDICATION
     Route: 048
     Dates: end: 20180615
  8. ADCAL-D3 [Concomitant]
     Active Substance: CALCIUM CARBONATE\CHOLECALCIFEROL
  9. TRIMETHOPRIM. [Concomitant]
     Active Substance: TRIMETHOPRIM
  10. MACROGOL/MACROGOL STEARATE [Suspect]
     Active Substance: POLYETHYLENE GLYCOLS
     Indication: CONSTIPATION
     Dosage: SACHET
     Route: 048
     Dates: end: 20180615
  11. BISACODYL. [Suspect]
     Active Substance: BISACODYL
     Indication: CONSTIPATION
     Dosage: AT NIGHT
     Route: 048
  12. PARACETAMOL [Concomitant]
     Active Substance: ACETAMINOPHEN

REACTIONS (4)
  - Malaise [Recovering/Resolving]
  - Diarrhoea [Recovering/Resolving]
  - Hypophosphataemia [Recovered/Resolved]
  - Hypokalaemia [Recovered/Resolved]

NARRATIVE: CASE EVENT DATE: 20180614
